FAERS Safety Report 8824317 (Version 1)
Quarter: 2012Q4

REPORT INFORMATION
  Report Type: 
  Country: US (occurrence: US)
  Receive Date: 20121004
  Receipt Date: 20121004
  Transmission Date: 20130627
  Serious: Yes (Death)
  Sender: FDA-Public Use
  Company Number: US-GENZYME-RENA-1001593

PATIENT
  Sex: Male

DRUGS (3)
  1. RENVELA [Suspect]
     Indication: HYPERPHOSPHATAEMIA
     Dosage: 7.2 g, qd
     Route: 065
  2. LEVOTHYROXINE [Concomitant]
     Indication: PRODUCT USED FOR UNKNOWN INDICATION
     Dosage: UNK
     Route: 065
  3. LEVOTHYROXINE [Concomitant]
     Dosage: UNK(dose increased)
     Route: 065

REACTIONS (4)
  - Death [Fatal]
  - Hyperphosphataemia [Unknown]
  - Blood calcium increased [Unknown]
  - Post procedural hypothyroidism [Unknown]
